FAERS Safety Report 24142419 (Version 1)
Quarter: 2024Q3

REPORT INFORMATION
  Report Type: Spontaneous
  Country: FR (occurrence: FR)
  Receive Date: 20240726
  Receipt Date: 20240726
  Transmission Date: 20241016
  Serious: No
  Sender: SANDOZ
  Company Number: FR-SANDOZ-SDZ2024FR039053

PATIENT
  Age: 9 Year
  Sex: Female

DRUGS (1)
  1. OMNITROPE [Suspect]
     Active Substance: SOMATROPIN
     Indication: Growth retardation
     Dosage: 1 MG, QD, 6D/7
     Route: 065
     Dates: start: 202312

REACTIONS (2)
  - Wrong technique in product usage process [Unknown]
  - Device mechanical issue [Unknown]
